FAERS Safety Report 16656690 (Version 1)
Quarter: 2019Q3

REPORT INFORMATION
  Report Type: Spontaneous
  Country: TR (occurrence: TR)
  Receive Date: 20190801
  Receipt Date: 20190801
  Transmission Date: 20191004
  Serious: Yes (Life-Threatening, Hospitalization, Disabling, Other)
  Sender: FDA-Public Use
  Company Number: TR-PFIZER INC-2019325449

PATIENT
  Age: 57 Year
  Sex: Female
  Weight: 68 kg

DRUGS (4)
  1. TEGRETOL XR [Concomitant]
     Active Substance: CARBAMAZEPINE
     Indication: EPILEPSY
     Dosage: 2 DF, DAILY
     Route: 048
  2. CHAMPIX [Suspect]
     Active Substance: VARENICLINE TARTRATE
     Indication: SMOKING CESSATION THERAPY
     Dosage: 0.5 MG, UNK
     Route: 048
     Dates: start: 20190507, end: 20190510
  3. BENVIDA [Concomitant]
     Active Substance: LACOSAMIDE
     Indication: EPILEPSY
     Dosage: 2.5 DF, DAILY
     Route: 048
  4. LUSTRAL [Concomitant]
     Active Substance: SERTRALINE HYDROCHLORIDE
     Indication: SEDATIVE THERAPY
     Dosage: 2 DF, DAILY
     Route: 048

REACTIONS (10)
  - Schizophrenia [Unknown]
  - Negative thoughts [Recovered/Resolved]
  - Feeling of despair [Recovered/Resolved]
  - Panic attack [Unknown]
  - Epilepsy [Recovered/Resolved]
  - Troponin I increased [Recovering/Resolving]
  - Depressed level of consciousness [Recovered/Resolved]
  - Nervousness [Recovered/Resolved]
  - Loss of consciousness [Unknown]
  - Disorientation [Unknown]

NARRATIVE: CASE EVENT DATE: 2019
